FAERS Safety Report 25330790 (Version 2)
Quarter: 2025Q2

REPORT INFORMATION
  Report Type: Spontaneous
  Country: US (occurrence: US)
  Receive Date: 20250519
  Receipt Date: 20250519
  Transmission Date: 20250716
  Serious: Yes (Hospitalization)
  Sender: BIOGEN
  Company Number: US-BIOGENIDEC-2008BI006579

PATIENT
  Sex: Female

DRUGS (17)
  1. AVONEX [Suspect]
     Active Substance: INTERFERON BETA-1A
     Indication: Multiple sclerosis
     Route: 050
     Dates: start: 20010419, end: 20020621
  2. AVONEX [Suspect]
     Active Substance: INTERFERON BETA-1A
     Route: 050
     Dates: start: 20040611
  3. FOLATE SODIUM [Concomitant]
     Active Substance: FOLATE SODIUM
     Indication: Product used for unknown indication
     Route: 050
  4. MONTELUKAST [Concomitant]
     Active Substance: MONTELUKAST
     Indication: Product used for unknown indication
     Route: 050
  5. VITAMIN B12 [Concomitant]
     Active Substance: CYANOCOBALAMIN
     Indication: Product used for unknown indication
     Route: 050
  6. VITAMIN B12 [Concomitant]
     Active Substance: CYANOCOBALAMIN
     Route: 050
  7. ZYRTEC ALLER [Concomitant]
     Indication: Product used for unknown indication
     Route: 050
  8. ZYRTEC ALLER [Concomitant]
     Route: 050
  9. BUPROPION [Concomitant]
     Active Substance: BUPROPION
     Indication: Product used for unknown indication
     Route: 050
  10. BUPROPION [Concomitant]
     Active Substance: BUPROPION
     Route: 050
  11. FLONASE ALLE SUS [Concomitant]
     Indication: Product used for unknown indication
     Route: 050
  12. FLONASE ALLE SUS [Concomitant]
     Route: 050
  13. METOPROLOL [Concomitant]
     Active Substance: METOPROLOL
     Indication: Product used for unknown indication
     Route: 050
  14. METOPROLOL [Concomitant]
     Active Substance: METOPROLOL
     Route: 050
  15. METOPROLOL [Concomitant]
     Active Substance: METOPROLOL
     Route: 050
  16. METOPROLOL [Concomitant]
     Active Substance: METOPROLOL
     Route: 050
  17. NUVARING RIN [Concomitant]
     Indication: Product used for unknown indication
     Route: 050

REACTIONS (7)
  - Thyroid cancer [Recovered/Resolved]
  - Asthma [Unknown]
  - Nasopharyngitis [Not Recovered/Not Resolved]
  - Blood calcium decreased [Unknown]
  - Blood magnesium decreased [Unknown]
  - Vitamin D decreased [Unknown]
  - Palpitations [Not Recovered/Not Resolved]

NARRATIVE: CASE EVENT DATE: 20010101
